FAERS Safety Report 8208788-9 (Version None)
Quarter: 2012Q1

REPORT INFORMATION
  Report Type: 
  Country: None (occurrence: None)
  Receive Date: 20120314
  Receipt Date: 20120301
  Transmission Date: 20120608
  Serious: No
  Sender: FDA-Public Use
  Company Number: CA-US-EMD SERONO, INC.-7114187

PATIENT
  Sex: Female

DRUGS (4)
  1. CLINDAMYCIN [Suspect]
     Indication: PROPHYLAXIS
     Route: 048
  2. REBIF [Suspect]
     Indication: RELAPSING-REMITTING MULTIPLE SCLEROSIS
     Route: 058
     Dates: start: 20111121
  3. KEFLEX [Suspect]
     Indication: PROPHYLAXIS
  4. BENADRYL [Concomitant]
     Indication: RASH
     Route: 048

REACTIONS (2)
  - DRUG HYPERSENSITIVITY [None]
  - CHEST X-RAY ABNORMAL [None]
